FAERS Safety Report 10089199 (Version 1)
Quarter: 2014Q2

REPORT INFORMATION
  Report Type: Spontaneous
  Country: ES (occurrence: ES)
  Receive Date: 20140421
  Receipt Date: 20140421
  Transmission Date: 20141212
  Serious: No
  Sender: FDA-Public Use
  Company Number: ES-JNJFOC-20140407273

PATIENT
  Age: 45 Year
  Sex: 0

DRUGS (1)
  1. USTEKINUMAB [Suspect]
     Indication: PSORIASIS
     Route: 058

REACTIONS (3)
  - Antinuclear antibody positive [Unknown]
  - Alopecia areata [Unknown]
  - Vitiligo [Unknown]
